FAERS Safety Report 6476704-6 (Version None)
Quarter: 2009Q4

REPORT INFORMATION
  Report Type: 
  Country: None (occurrence: None)
  Receive Date: 20091207
  Receipt Date: 20091126
  Transmission Date: 20100525
  Serious: Yes (Other)
  Sender: FDA-Public Use
  Company Number: BR-ROCHE-671166

PATIENT
  Sex: Male
  Weight: 70 kg

DRUGS (3)
  1. PEGASYS [Suspect]
     Indication: HEPATITIS C
     Dosage: DOSE REPORTED AS: 180 MCG/0.5 ML, FREQUENCY: 1 AMPULE/0.5ML/WEEK
     Route: 065
     Dates: start: 20091105
  2. PEGASYS [Suspect]
     Dosage: DOSE REPORTED AS: 180 MCG/0.5 ML, FREQUENCY: 0.2 ML
     Route: 065
     Dates: start: 20091119, end: 20091119
  3. RIBAVIRIN [Concomitant]
     Indication: HEPATITIS C
     Dosage: FREQUENCY: 4 TABLET/DAY
     Route: 048
     Dates: start: 20091105

REACTIONS (2)
  - LARYNGEAL OEDEMA [None]
  - URTICARIA [None]
